FAERS Safety Report 14663747 (Version 23)
Quarter: 2021Q3

REPORT INFORMATION
  Report Type: Report from Study
  Country: CA (occurrence: CA)
  Receive Date: 20180321
  Receipt Date: 20210826
  Transmission Date: 20211014
  Serious: Yes (Other)
  Sender: FDA-Public Use
  Company Number: PHHY2017CA020066

PATIENT
  Age: 85 Year
  Sex: Male

DRUGS (9)
  1. RAMIPRIL. [Suspect]
     Active Substance: RAMIPRIL
     Dosage: 15 MG, QD
     Route: 048
  2. SANDOSTATIN LAR DEPOT [Suspect]
     Active Substance: OCTREOTIDE ACETATE
     Indication: CARCINOID SYNDROME
     Dosage: 30 MG, QMO
     Route: 030
     Dates: start: 20160128
  3. SANDOSTATIN LAR DEPOT [Suspect]
     Active Substance: OCTREOTIDE ACETATE
     Dosage: 30 MG, QMO
     Route: 030
     Dates: start: 20200507
  4. SANDOSTATIN LAR DEPOT [Suspect]
     Active Substance: OCTREOTIDE ACETATE
     Dosage: 30 MG, QMO
     Route: 030
     Dates: start: 20200214
  5. AMLODIPINE [Suspect]
     Active Substance: AMLODIPINE BESYLATE
     Indication: PRODUCT USED FOR UNKNOWN INDICATION
     Dosage: UNK, QD
     Route: 065
  6. SANDOSTATIN LAR DEPOT [Suspect]
     Active Substance: OCTREOTIDE ACETATE
     Dosage: 10 MG
     Route: 030
     Dates: start: 20180705
  7. RAMIPRIL. [Suspect]
     Active Substance: RAMIPRIL
     Dosage: 5 MG, QD
     Route: 048
  8. RAMIPRIL. [Suspect]
     Active Substance: RAMIPRIL
     Indication: PRODUCT USED FOR UNKNOWN INDICATION
     Dosage: UNK, QD
     Route: 065
  9. APO?ATORVASTATIN [Concomitant]
     Active Substance: ATORVASTATIN
     Indication: PRODUCT USED FOR UNKNOWN INDICATION
     Dosage: UNK, QD
     Route: 065

REACTIONS (17)
  - Blood pressure systolic increased [Unknown]
  - Pain in extremity [Recovering/Resolving]
  - Blood pressure increased [Unknown]
  - Rheumatoid arthritis [Unknown]
  - Joint swelling [Recovering/Resolving]
  - Gout [Recovering/Resolving]
  - Product dispensing error [Unknown]
  - Skin exfoliation [Unknown]
  - Heart rate decreased [Unknown]
  - Gait disturbance [Recovering/Resolving]
  - Skin laceration [Unknown]
  - Fatigue [Unknown]
  - Blood pressure diastolic decreased [Unknown]
  - Incorrect dosage administered [Unknown]
  - Arthralgia [Unknown]
  - COVID-19 [Unknown]
  - Blood pressure decreased [Unknown]

NARRATIVE: CASE EVENT DATE: 20170203
